FAERS Safety Report 17708237 (Version 1)
Quarter: 2020Q2

REPORT INFORMATION
  Report Type: Spontaneous
  Country: GB (occurrence: GB)
  Receive Date: 20200425
  Receipt Date: 20200425
  Transmission Date: 20200714
  Serious: Yes (Other)
  Sender: FDA-Public Use
  Company Number: GB-ADVANZ PHARMA-202004003500

PATIENT

DRUGS (6)
  1. PREDNISOLONE 1 MG/KG [Suspect]
     Active Substance: PREDNISOLONE
     Indication: IRIDOCYCLITIS
     Route: 061
  2. PREDNISOLONE. [Suspect]
     Active Substance: PREDNISOLONE
     Indication: IRIDOCYCLITIS
     Dosage: DOSE TAPERED AFTER 3 MONTHS IN ACCORDANCE WITH CLINICAL RESPONSE
     Route: 048
  3. POTASSIUM [Concomitant]
     Active Substance: POTASSIUM
     Indication: SUPPLEMENTATION THERAPY
  4. PREDNISOLONE. [Suspect]
     Active Substance: PREDNISOLONE
     Dosage: 1 MG/KG
     Route: 048
  5. METHYLPREDNISOLONE. [Suspect]
     Active Substance: METHYLPREDNISOLONE
     Indication: IRIDOCYCLITIS
     Dosage: THREE PULSES OF HIGH-DOSE INTRAVENOUS
     Route: 042
  6. PHOSPHATE [Concomitant]
     Active Substance: UNSPECIFIED INGREDIENT
     Indication: SUPPLEMENTATION THERAPY

REACTIONS (7)
  - Cushingoid [Unknown]
  - Intraocular pressure increased [Recovered/Resolved]
  - Hypertension [Recovered/Resolved]
  - Sleep disorder [Unknown]
  - Condition aggravated [Unknown]
  - Increased appetite [Unknown]
  - Weight increased [Unknown]
